FAERS Safety Report 4555796-5 (Version None)
Quarter: 2005Q1

REPORT INFORMATION
  Report Type: 
  Country: None (occurrence: None)
  Receive Date: 20050118
  Receipt Date: 20041014
  Transmission Date: 20050727
  Serious: No
  Sender: FDA-Public Use
  Company Number: A03200403507

PATIENT
  Age: 66 Year
  Sex: Male

DRUGS (1)
  1. UROXATRAL [Suspect]
     Dosage: 10 MG OD ORAL
     Route: 048
     Dates: start: 20040805

REACTIONS (3)
  - AGITATION [None]
  - INSOMNIA [None]
  - TACHYCARDIA [None]
